FAERS Safety Report 5081649-2 (Version None)
Quarter: 2006Q3

REPORT INFORMATION
  Report Type: 
  Country: None (occurrence: None)
  Receive Date: 20060811
  Receipt Date: 20060804
  Transmission Date: 20061208
  Serious: Yes (Other)
  Sender: FDA-Public Use
  Company Number: 2006089593

PATIENT
  Age: 3 Year
  Sex: Female
  Weight: 15.8759 kg

DRUGS (1)
  1. BENYLIN DM 12 HOUR SYRUP (DEXTROMETHORPHAN) [Suspect]
     Indication: NASOPHARYNGITIS
     Dosage: ONE TEASPOON ONCE, ORAL
     Route: 048
     Dates: start: 20060721, end: 20060721

REACTIONS (2)
  - PYREXIA [None]
  - WHEEZING [None]
